FAERS Safety Report 21583880 (Version 1)
Quarter: 2022Q4

REPORT INFORMATION
  Report Type: Spontaneous
  Country: US (occurrence: US)
  Receive Date: 20221111
  Receipt Date: 20221111
  Transmission Date: 20230113
  Serious: Yes (Hospitalization, Other)
  Sender: FDA-Public Use
  Company Number: US-APOTEX-2022AP015284

PATIENT
  Age: 57 Year
  Sex: Female

DRUGS (4)
  1. TIZANIDINE [Suspect]
     Active Substance: TIZANIDINE
     Indication: Pain
     Dosage: UNK
     Route: 065
  2. CYCLOBENZAPRINE [Suspect]
     Active Substance: CYCLOBENZAPRINE
     Indication: Product used for unknown indication
     Dosage: UNK
     Route: 065
  3. HYDROXYZINE [Suspect]
     Active Substance: HYDROXYZINE HYDROCHLORIDE
     Indication: Product used for unknown indication
     Dosage: UNK
     Route: 065
  4. DIAZEPAM [Suspect]
     Active Substance: DIAZEPAM
     Indication: Product used for unknown indication
     Dosage: UNK
     Route: 065

REACTIONS (5)
  - Overdose [Unknown]
  - Toxic encephalopathy [Recovering/Resolving]
  - Toxicity to various agents [Unknown]
  - Bradycardia [Recovering/Resolving]
  - Hypotension [Recovering/Resolving]
